FAERS Safety Report 8772931 (Version 2)
Quarter: 2012Q4

REPORT INFORMATION
  Report Type: 
  Country: DE (occurrence: DE)
  Receive Date: 20120907
  Receipt Date: 20121002
  Transmission Date: 20130627
  Serious: Yes (Hospitalization)
  Sender: FDA-Public Use
  Company Number: DE-ELI_LILLY_AND_COMPANY-DE201208009425

PATIENT
  Sex: Male

DRUGS (6)
  1. BYETTA [Suspect]
     Indication: DIABETES MELLITUS
     Dosage: 5 ug, bid
     Route: 058
  2. RAMIPRIL [Concomitant]
  3. AMLODIPIN                          /00972401/ [Concomitant]
  4. METOPROLOL [Concomitant]
  5. SIMVASTATIN [Concomitant]
  6. PLAVIX [Concomitant]

REACTIONS (3)
  - Stent placement [Recovered/Resolved]
  - Blood glucose increased [Recovered/Resolved]
  - Weight decreased [Not Recovered/Not Resolved]
